FAERS Safety Report 22078403 (Version 2)
Quarter: 2023Q2

REPORT INFORMATION
  Report Type: Spontaneous
  Country: US (occurrence: US)
  Receive Date: 20230309
  Receipt Date: 20230404
  Transmission Date: 20230722
  Serious: No
  Sender: FDA-Public Use
  Company Number: US-009507513-2303USA001745

PATIENT
  Age: 66 Year
  Sex: Male
  Weight: 117 kg

DRUGS (2)
  1. KEYTRUDA [Suspect]
     Active Substance: PEMBROLIZUMAB
     Indication: Lung cancer metastatic
     Dosage: 200 MG IV EVERY 21 DAYS
     Route: 042
     Dates: start: 20210601
  2. KEYTRUDA [Suspect]
     Active Substance: PEMBROLIZUMAB
     Dosage: 200 MG IV EVERY 21 DAYS
     Route: 042
     Dates: start: 20230303

REACTIONS (4)
  - Inappropriate schedule of product administration [Unknown]
  - Intercepted product preparation error [Unknown]
  - Product availability issue [Unknown]
  - No adverse event [Unknown]

NARRATIVE: CASE EVENT DATE: 20230302
